FAERS Safety Report 5511337-7 (Version None)
Quarter: 2007Q4

REPORT INFORMATION
  Report Type: 
  Country: None (occurrence: None)
  Receive Date: 20071109
  Receipt Date: 20070924
  Transmission Date: 20080405
  Serious: No
  Sender: FDA-Public Use
  Company Number: A0678126A

PATIENT
  Age: 11 Month
  Sex: Female

DRUGS (2)
  1. ALTABAX [Suspect]
     Dosage: 1APP TWICE PER DAY
     Route: 061
     Dates: start: 20070831, end: 20070831
  2. NO CONCURRENT MEDICATION [Concomitant]

REACTIONS (2)
  - SCREAMING [None]
  - URTICARIA [None]
